FAERS Safety Report 22395919 (Version 1)
Quarter: 2023Q2

REPORT INFORMATION
  Report Type: Spontaneous
  Country: US (occurrence: US)
  Receive Date: 20230601
  Receipt Date: 20230601
  Transmission Date: 20230722
  Serious: No
  Sender: FDA-Public Use
  Company Number: US-APIL-2314780US

PATIENT
  Sex: Female

DRUGS (6)
  1. BOTOX [Suspect]
     Active Substance: ONABOTULINUMTOXINA
     Indication: Product used for unknown indication
     Dosage: UNK UNK, SINGLE
  2. JUVEDERM VOLUMA XC [Concomitant]
     Active Substance: HYALURONIC ACID\LIDOCAINE HYDROCHLORIDE
     Indication: Skin wrinkling
     Dosage: 1ML SYRINGE OF VOLUMA
     Dates: start: 20201120, end: 20201120
  3. HYALURONIC ACID\LIDOCAINE HYDROCHLORIDE [Concomitant]
     Active Substance: HYALURONIC ACID\LIDOCAINE HYDROCHLORIDE
     Indication: Lip disorder
     Dosage: 1ML OF VOLBELLA
     Dates: start: 20210309
  4. HYLENEX RECOMBINANT [Concomitant]
     Active Substance: HYALURONIDASE (HUMAN RECOMBINANT)
     Indication: Skin wrinkling
     Dosage: 1 ML
     Dates: start: 20230501
  5. HYLENEX RECOMBINANT [Concomitant]
     Active Substance: HYALURONIDASE (HUMAN RECOMBINANT)
     Indication: Lip disorder
     Dosage: 0.5 ML
     Dates: start: 20230501
  6. HYLENEX RECOMBINANT [Concomitant]
     Active Substance: HYALURONIDASE (HUMAN RECOMBINANT)
     Indication: Lip disorder
     Dosage: 1.5 ML
     Dates: start: 20230501

REACTIONS (3)
  - Eye swelling [Recovering/Resolving]
  - Lip disorder [Unknown]
  - Skin mass [Unknown]

NARRATIVE: CASE EVENT DATE: 20230128
